FAERS Safety Report 8178496 (Version 2)
Quarter: 2014Q4

REPORT INFORMATION
  Report Type: Spontaneous
  Country: US (occurrence: None)
  Receive Date: 20110930
  Receipt Date: 20141117
  Transmission Date: 20150529
  Serious: Yes (Other)
  Sender: FDA-Public Use
  Company Number: JPI-P-017061

PATIENT
  Age: 54 Year
  Sex: Female
  Weight: 59.1 kg

DRUGS (5)
  1. XYREM [Suspect]
     Active Substance: SODIUM OXYBATE
     Indication: CATAPLEXY
     Dosage: ORAL, 9 GM (4.5 GM, 2 IN 1 D), ORAL
     Route: 048
     Dates: start: 20070131
  2. XYREM [Suspect]
     Active Substance: SODIUM OXYBATE
     Indication: PYREXIA
     Dosage: ORAL, 9 GM (4.5 GM, 2 IN 1 D), ORAL
     Route: 048
     Dates: start: 20070131
  3. HIGH BLOOD PRESSURE MEDICATIONS [Concomitant]
  4. DEXTROAMPHETAMINE [Concomitant]
     Active Substance: DEXTROAMPHETAMINE
  5. ANTIHYPERTENSIVES [Concomitant]
     Active Substance: UNSPECIFIED INGREDIENT

REACTIONS (6)
  - Pain [None]
  - Post procedural complication [None]
  - Pyrexia [None]
  - Back pain [None]
  - Antiphospholipid syndrome [None]
  - Intervertebral disc protrusion [None]

NARRATIVE: CASE EVENT DATE: 20110824
